FAERS Safety Report 6418950-3 (Version None)
Quarter: 2009Q4

REPORT INFORMATION
  Report Type: 
  Country: None (occurrence: None)
  Receive Date: 20091029
  Receipt Date: 20091016
  Transmission Date: 20100525
  Serious: Yes (Hospitalization)
  Sender: FDA-Public Use
  Company Number: JP-JNJFOC-20091006348

PATIENT
  Age: 50 Year

DRUGS (2)
  1. FINIBAX [Suspect]
     Indication: DRUG USE FOR UNKNOWN INDICATION
     Route: 041
     Dates: start: 20091010, end: 20091016
  2. FLOMOXEF SODIUM [Suspect]
     Indication: INFECTION PROPHYLAXIS
     Route: 041
     Dates: start: 20091007, end: 20091009

REACTIONS (1)
  - PYREXIA [None]
